FAERS Safety Report 20841502 (Version 1)
Quarter: 2022Q2

REPORT INFORMATION
  Report Type: Spontaneous
  Country: US (occurrence: US)
  Receive Date: 20220518
  Receipt Date: 20220518
  Transmission Date: 20220720
  Serious: Yes (Other)
  Sender: FDA-Public Use
  Company Number: US-STRIDES ARCOLAB LIMITED-2022SP005587

PATIENT
  Sex: Female

DRUGS (3)
  1. GABAPENTIN [Suspect]
     Active Substance: GABAPENTIN
     Indication: Cystitis interstitial
     Dosage: UNK, LOW DOSES
     Route: 065
  2. AMITRIPTYLINE [Suspect]
     Active Substance: AMITRIPTYLINE
     Indication: Cystitis interstitial
     Dosage: UNK, LOW DOSES
     Route: 065
  3. ETODOLAC [Suspect]
     Active Substance: ETODOLAC
     Indication: Cystitis interstitial
     Dosage: UNK, LOW DOSES
     Route: 065

REACTIONS (4)
  - Cognitive disorder [Unknown]
  - Vision blurred [Unknown]
  - Headache [Unknown]
  - Off label use [Unknown]
